FAERS Safety Report 5406171-2 (Version None)
Quarter: 2007Q3

REPORT INFORMATION
  Report Type: 
  Country: None (occurrence: None)
  Receive Date: 20070801
  Receipt Date: 20070725
  Transmission Date: 20080115
  Serious: Yes (Hospitalization)
  Sender: FDA-Public Use
  Company Number: THQ2007A00709

PATIENT
  Age: 78 Year
  Sex: Female

DRUGS (7)
  1. PIOGLITAZONE HCL [Suspect]
     Indication: DIABETES MELLITUS
     Dosage: 30 MG (30 MG, 1 IN 1 D) PER ORAL
     Route: 048
     Dates: start: 20031118, end: 20040312
  2. METFORMIN HCL [Concomitant]
  3. GLYBURIDE [Concomitant]
  4. FOSINOPRIL SODIUM [Concomitant]
  5. NORVASC [Concomitant]
  6. PRAVACHOL [Concomitant]
  7. ASPIRIN [Concomitant]

REACTIONS (8)
  - ATRIOVENTRICULAR BLOCK [None]
  - CARDIAC FAILURE CONGESTIVE [None]
  - CHILLS [None]
  - DYSPNOEA EXERTIONAL [None]
  - LUNG CONSOLIDATION [None]
  - PLEURAL EFFUSION [None]
  - PYREXIA [None]
  - VENTRICULAR HYPERTROPHY [None]
